FAERS Safety Report 7214425-2 (Version None)
Quarter: 2011Q1

REPORT INFORMATION
  Report Type: 
  Country: None (occurrence: None)
  Receive Date: 20110107
  Receipt Date: 20101229
  Transmission Date: 20110831
  Serious: No
  Sender: FDA-Public Use
  Company Number: US-BAYER-2011-000454

PATIENT
  Sex: Female

DRUGS (1)
  1. MIRENA [Suspect]
     Dosage: DAILY DOSE 20 A?G
     Route: 015
     Dates: start: 20101217, end: 20101222

REACTIONS (1)
  - PREGNANCY WITH CONTRACEPTIVE DEVICE [None]
